FAERS Safety Report 7297530-4 (Version None)
Quarter: 2011Q1

REPORT INFORMATION
  Report Type: 
  Country: None (occurrence: None)
  Receive Date: 20110216
  Receipt Date: 20110202
  Transmission Date: 20110831
  Serious: Yes (Death, Other)
  Sender: FDA-Public Use
  Company Number: JP-CELGENEUS-087-21880-11020309

PATIENT
  Sex: Male

DRUGS (15)
  1. MAGNESIUM OXIDE [Concomitant]
     Route: 048
     Dates: start: 20100928
  2. LENADEX [Suspect]
     Route: 048
     Dates: start: 20101026, end: 20101116
  3. OXYCONTIN [Concomitant]
     Route: 048
     Dates: start: 20100928, end: 20101227
  4. URSO 250 [Concomitant]
     Route: 048
     Dates: start: 20100928, end: 20101227
  5. BACTRIM [Concomitant]
     Route: 048
     Dates: start: 20100928, end: 20101224
  6. REVLIMID [Suspect]
     Route: 048
     Dates: start: 20101026, end: 20101115
  7. METHYCOBAL [Concomitant]
     Route: 048
     Dates: start: 20100928, end: 20101227
  8. LOXONIN [Concomitant]
     Route: 048
     Dates: start: 20100928, end: 20101227
  9. REVLIMID [Suspect]
     Route: 048
     Dates: start: 20101123, end: 20101213
  10. DUROTEP [Concomitant]
     Route: 062
     Dates: start: 20101228, end: 20101230
  11. LENADEX [Suspect]
     Indication: MULTIPLE MYELOMA
     Route: 048
     Dates: start: 20100928, end: 20101019
  12. DOMPERIDONE [Concomitant]
     Route: 048
     Dates: start: 20100928, end: 20101031
  13. GOSHA-JINKI-GAN [Concomitant]
     Route: 048
     Dates: start: 20100928, end: 20101031
  14. REVLIMID [Suspect]
     Indication: MULTIPLE MYELOMA
     Route: 048
     Dates: start: 20100928, end: 20101018
  15. LENADEX [Suspect]
     Route: 048
     Dates: start: 20101123, end: 20101214

REACTIONS (5)
  - PNEUMONIA [None]
  - HEPATIC FUNCTION ABNORMAL [None]
  - RENAL FAILURE [None]
  - SEPSIS [None]
  - SYSTEMIC CANDIDA [None]
